FAERS Safety Report 16845208 (Version 2)
Quarter: 2019Q3

REPORT INFORMATION
  Report Type: Spontaneous
  Country: US (occurrence: US)
  Receive Date: 20190924
  Receipt Date: 20190930
  Transmission Date: 20191005
  Serious: No
  Sender: FDA-Public Use
  Company Number: US-PFIZER INC-2019411212

PATIENT
  Age: 51 Year
  Sex: Female
  Weight: 112 kg

DRUGS (4)
  1. LYRICA [Suspect]
     Active Substance: PREGABALIN
     Indication: MERALGIA PARAESTHETICA
     Dosage: 50 MG, 3X/DAY
     Route: 048
     Dates: start: 2014
  2. APIDRA [Concomitant]
     Active Substance: INSULIN GLULISINE
     Dosage: 32 IU, UNK [EACH MEAL]
  3. TRULICITY [Concomitant]
     Active Substance: DULAGLUTIDE
     Dosage: 1.5 MG, WEEKLY [ONCE A WEEK INJECTION]
  4. LANTUS [Concomitant]
     Active Substance: INSULIN GLARGINE
     Dosage: 50 IU, UNK

REACTIONS (8)
  - Condition aggravated [Unknown]
  - Pain [Unknown]
  - Off label use [Unknown]
  - Product use in unapproved indication [Unknown]
  - Discomfort [Unknown]
  - Therapeutic product effect incomplete [Unknown]
  - Nerve injury [Unknown]
  - Meralgia paraesthetica [Unknown]

NARRATIVE: CASE EVENT DATE: 2014
